FAERS Safety Report 9711601 (Version 1)
Quarter: 2013Q4

REPORT INFORMATION
  Report Type: Spontaneous
  Country: US (occurrence: US)
  Receive Date: 20131126
  Receipt Date: 20131126
  Transmission Date: 20140711
  Serious: No
  Sender: FDA-Public Use
  Company Number: US-BRISTOL-MYERS SQUIBB COMPANY-18777466

PATIENT
  Age: 58 Year
  Sex: Male
  Weight: 86.17 kg

DRUGS (5)
  1. BYDUREON [Suspect]
     Indication: TYPE 2 DIABETES MELLITUS
  2. METFORMIN HCL [Concomitant]
  3. ACTOS [Concomitant]
  4. CRESTOR [Concomitant]
  5. CIALIS [Concomitant]

REACTIONS (1)
  - Skin disorder [Recovering/Resolving]
